FAERS Safety Report 15853114 (Version 1)
Quarter: 2019Q1

REPORT INFORMATION
  Report Type: Spontaneous
  Country: AU (occurrence: AU)
  Receive Date: 20190122
  Receipt Date: 20190122
  Transmission Date: 20190417
  Serious: Yes (Other)
  Sender: FDA-Public Use
  Company Number: AU-TEVA-2019-AU-1002467

PATIENT
  Age: 31 Year
  Sex: Female

DRUGS (1)
  1. PACLITAXEL. [Suspect]
     Active Substance: PACLITAXEL
     Dosage: DOSAGE UNKNOWN
     Route: 065

REACTIONS (3)
  - Chest discomfort [Unknown]
  - Throat tightness [Unknown]
  - Dyspnoea [Unknown]
